FAERS Safety Report 23848565 (Version 2)
Quarter: 2024Q3

REPORT INFORMATION
  Report Type: Spontaneous
  Country: US (occurrence: US)
  Receive Date: 20240513
  Receipt Date: 20240903
  Transmission Date: 20241017
  Serious: Yes (Other)
  Sender: MYLAN
  Company Number: US-MYLANLABS-2024M1042462

PATIENT
  Age: 61 Year
  Sex: Male
  Weight: 115.67 kg

DRUGS (10)
  1. CLOZAPINE [Suspect]
     Active Substance: CLOZAPINE
     Indication: Product used for unknown indication
     Dosage: UNK
     Route: 065
  2. CLOZAPINE [Suspect]
     Active Substance: CLOZAPINE
     Dosage: 100 MILLIGRAM, QID (1 TABLET FOUR TIMES A DAY)
     Route: 048
     Dates: start: 20240313
  3. OZEMPIC [Concomitant]
     Active Substance: SEMAGLUTIDE
     Indication: Type 2 diabetes mellitus
     Dosage: 2 MILLIGRAM, QW (2MG/DOSE BELOW THE SKIN, WEEKLY) (STRENGTH: 8MG/3ML PEN INJECTOR)
     Route: 058
     Dates: start: 20240313
  4. ATORVASTATIN [Concomitant]
     Active Substance: ATORVASTATIN
     Indication: Hyperlipidaemia
     Dosage: 10 MILLIGRAM, QD (1 TABLET DAILY)
     Route: 048
     Dates: start: 20240313
  5. COREG [Concomitant]
     Active Substance: CARVEDILOL
     Indication: Essential hypertension
     Dosage: 40 MILLIGRAM, QD (1 CAPSULE DAILY) (EXTENDED RELEASE)
     Route: 048
  6. BENICAR [Concomitant]
     Active Substance: OLMESARTAN MEDOXOMIL
     Indication: Essential hypertension
     Dosage: 20 MILLIGRAM, QD (1 TABLET DAILY)
     Route: 048
     Dates: start: 20240313
  7. VIIBRYD [Concomitant]
     Active Substance: VILAZODONE HYDROCHLORIDE
     Indication: Depressed mood
     Dosage: 40 MILLIGRAM, QD (1 TABLET DAILY)
     Route: 048
     Dates: start: 20240313
  8. TRAZODONE [Concomitant]
     Active Substance: TRAZODONE HYDROCHLORIDE
     Indication: Insomnia
     Dosage: 100 MILLIGRAM, QD (1 TABLET DAILY)
     Route: 048
     Dates: start: 20240313
  9. TRAZODONE [Concomitant]
     Active Substance: TRAZODONE HYDROCHLORIDE
     Dosage: 200 MILLIGRAM, QD (QHS)
     Route: 065
  10. METFORMIN [Concomitant]
     Active Substance: METFORMIN HYDROCHLORIDE
     Dosage: 500 MILLIGRAM, QD (1 TABLET DAILY)
     Route: 048

REACTIONS (11)
  - Neutropenia [Unknown]
  - Respiratory symptom [Unknown]
  - Rhinorrhoea [Unknown]
  - Cough [Unknown]
  - Dizziness [Unknown]
  - Headache [Unknown]
  - Red blood cell count decreased [Not Recovered/Not Resolved]
  - Haemoglobin decreased [Not Recovered/Not Resolved]
  - Haematocrit decreased [Not Recovered/Not Resolved]
  - Neutrophil count increased [Recovering/Resolving]
  - Lymphocyte count decreased [Recovering/Resolving]

NARRATIVE: CASE EVENT DATE: 20240503
